FAERS Safety Report 14055857 (Version 2)
Quarter: 2017Q4

REPORT INFORMATION
  Report Type: Report from Study
  Country: None (occurrence: AU)
  Receive Date: 20171006
  Receipt Date: 20171009
  Transmission Date: 20180321
  Serious: Yes (Hospitalization, Other)
  Sender: FDA-Public Use
  Company Number: AU-ABBVIE-17K-008-2091630-00

PATIENT
  Age: 73 Year
  Sex: Male

DRUGS (2)
  1. DUODOPA [Suspect]
     Active Substance: CARBIDOPA\LEVODOPA
     Indication: PARKINSON^S DISEASE
     Dosage: 16 HOUR THERAPY/PEG-J
     Route: 050
     Dates: start: 20150715, end: 2017
  2. DUODOPA [Suspect]
     Active Substance: CARBIDOPA\LEVODOPA
     Dosage: 16 HOUR THERAPY/PEG-J
     Route: 050
     Dates: start: 201709

REACTIONS (7)
  - Stoma site discharge [Not Recovered/Not Resolved]
  - Device dislocation [Recovered/Resolved]
  - Device occlusion [Unknown]
  - Device dislocation [Unknown]
  - Bezoar [Unknown]
  - Tracheostomy [Unknown]
  - Intestinal obstruction [Recovered/Resolved]

NARRATIVE: CASE EVENT DATE: 2017
